FAERS Safety Report 7934993-2 (Version None)
Quarter: 2011Q4

REPORT INFORMATION
  Report Type: 
  Country: None (occurrence: None)
  Receive Date: 20111118
  Receipt Date: 20111108
  Transmission Date: 20120403
  Serious: Yes (Death)
  Sender: FDA-Public Use
  Company Number: WAES 1104USA03922

PATIENT
  Age: 67 Year
  Sex: Male

DRUGS (8)
  1. CISPLATIN [Concomitant]
  2. EMEND [Suspect]
     Indication: PROPHYLAXIS
     Dosage: 125;80  MG, DAILY, PO
     Route: 048
     Dates: start: 20110326, end: 20110327
  3. EMEND [Suspect]
     Indication: PROPHYLAXIS
     Dosage: 125;80  MG, DAILY, PO
     Route: 048
     Dates: start: 20110325, end: 20110325
  4. FLUOROURACIL [Suspect]
     Indication: OESOPHAGEAL CARCINOMA
     Dosage: 1000 MG, DAILY, IV
     Route: 042
     Dates: start: 20110325, end: 20110331
  5. DOXORUBICIN HYDROCHLORIDE [Concomitant]
  6. HUMULIN R [Concomitant]
  7. HALOPERIDOL [Concomitant]
  8. ZOFRAN [Concomitant]

REACTIONS (17)
  - STOMATITIS [None]
  - HYPERBILIRUBINAEMIA [None]
  - INTERNATIONAL NORMALISED RATIO DECREASED [None]
  - BONE MARROW FAILURE [None]
  - ACTIVATED PARTIAL THROMBOPLASTIN TIME PROLONGED [None]
  - ACUTE RESPIRATORY DISTRESS SYNDROME [None]
  - WHITE BLOOD CELL COUNT DECREASED [None]
  - SKIN INFECTION [None]
  - ORAL INFECTION [None]
  - DIHYDROPYRIMIDINE DEHYDROGENASE DEFICIENCY [None]
  - PNEUMONIA [None]
  - STEVENS-JOHNSON SYNDROME [None]
  - AGRANULOCYTOSIS [None]
  - PLATELET COUNT DECREASED [None]
  - DISSEMINATED INTRAVASCULAR COAGULATION [None]
  - INTERNATIONAL NORMALISED RATIO ABNORMAL [None]
  - FEBRILE NEUTROPENIA [None]
